FAERS Safety Report 5311648-4 (Version None)
Quarter: 2007Q2

REPORT INFORMATION
  Report Type: 
  Country: None (occurrence: None)
  Receive Date: 20070430
  Receipt Date: 20060915
  Transmission Date: 20071010
  Serious: No
  Sender: FDA-Public Use
  Company Number: 2006UW18194

PATIENT
  Age: 46 Year
  Sex: Female

DRUGS (2)
  1. ZOMIG [Suspect]
     Indication: MIGRAINE
     Route: 048
  2. TOPAMAX [Concomitant]
     Indication: PROPHYLAXIS

REACTIONS (1)
  - BURNING SENSATION [None]
